FAERS Safety Report 18147606 (Version 2)
Quarter: 2020Q3

REPORT INFORMATION
  Report Type: Spontaneous
  Country: IT (occurrence: IT)
  Receive Date: 20200814
  Receipt Date: 20200825
  Transmission Date: 20201103
  Serious: Yes (Other)
  Sender: FDA-Public Use
  Company Number: IT-AUROBINDO-AUR-APL-2020-038739

PATIENT
  Age: 33 Year
  Sex: Male
  Weight: 55 kg

DRUGS (6)
  1. GRANULOCYTE COLONY STIMULATING FACTOR [Concomitant]
     Active Substance: GRANULOCYTE COLONY-STIMULATING FACTOR NOS
     Indication: TESTICULAR GERM CELL TUMOUR
     Dosage: UNK
     Route: 065
  2. CARBOPLATIN. [Suspect]
     Active Substance: CARBOPLATIN
     Indication: TESTICULAR GERM CELL TUMOUR
     Dosage: UNK, CYCLICAL, (THIRD  CYCLE)
     Route: 065
     Dates: start: 20200314
  3. ETOPOSIDE. [Suspect]
     Active Substance: ETOPOSIDE
     Indication: TESTICULAR GERM CELL TUMOUR
     Dosage: 400 MILLIGRAM/SQ. METER, CYCLICAL, (THIRD CYCLE)
     Route: 065
     Dates: start: 20200314
  4. IFOSFAMIDE. [Suspect]
     Active Substance: IFOSFAMIDE
     Indication: TESTICULAR GERM CELL TUMOUR
     Dosage: UNK, CYCLICAL, (THIRD CYCLE)
     Route: 065
     Dates: start: 202003
  5. PACLITAXEL. [Suspect]
     Active Substance: PACLITAXEL
     Indication: TESTICULAR GERM CELL TUMOUR
     Dosage: UNK, CYCLICAL, (THIRD CYCLE)
     Route: 065
     Dates: start: 202003
  6. LEVOXACIN [Concomitant]
     Active Substance: LEVOFLOXACIN
     Indication: TESTICULAR GERM CELL TUMOUR
     Dosage: UNK
     Route: 065

REACTIONS (4)
  - Febrile neutropenia [Unknown]
  - Pancytopenia [Recovering/Resolving]
  - Diarrhoea [Unknown]
  - Abdominal pain [Unknown]

NARRATIVE: CASE EVENT DATE: 202003
